FAERS Safety Report 5755176-0 (Version None)
Quarter: 2008Q2

REPORT INFORMATION
  Report Type: 
  Country: None (occurrence: None)
  Receive Date: 20080528
  Receipt Date: 20080515
  Transmission Date: 20081010
  Serious: Yes (Hospitalization, Other)
  Sender: FDA-Public Use
  Company Number: 163-21880-08031735

PATIENT
  Age: 81 Year
  Sex: Male

DRUGS (7)
  1. REVLIMID [Suspect]
     Indication: PROSTATE CANCER
     Dosage: 25 MG, QD, ORAL
     Route: 048
     Dates: start: 20080304, end: 20080324
  2. KETOCONAZOLE [Suspect]
     Indication: PROSTATE CANCER
     Dosage: 400 MG, TID, ORAL
     Route: 048
     Dates: start: 20080304, end: 20080324
  3. OMEGA 3 (FISH OIL) [Concomitant]
  4. ASPIRIN [Concomitant]
  5. MULTIVITAMIN (MULTIVITAMINS) (TABLETS) [Concomitant]
  6. ZOLADEX [Concomitant]
  7. METOPROLOL TARTRATE [Concomitant]

REACTIONS (5)
  - ALANINE AMINOTRANSFERASE ABNORMAL [None]
  - ASPARTATE AMINOTRANSFERASE ABNORMAL [None]
  - BLISTER [None]
  - JAUNDICE [None]
  - LIP BLISTER [None]
